FAERS Safety Report 7782064-0 (Version None)
Quarter: 2011Q3

REPORT INFORMATION
  Report Type: 
  Country: None (occurrence: None)
  Receive Date: 20110927
  Receipt Date: 20110923
  Transmission Date: 20111222
  Serious: Yes (Hospitalization, Disabling, Other)
  Sender: FDA-Public Use
  Company Number: IE-ABBOTT-11P-229-0706356-00

PATIENT
  Sex: Male
  Weight: 102 kg

DRUGS (6)
  1. ZYLORIN [Concomitant]
     Indication: PRODUCT USED FOR UNKNOWN INDICATION
     Route: 048
     Dates: start: 20080101
  2. HUMIRA [Suspect]
     Indication: PSORIATIC ARTHROPATHY
     Dates: start: 20100301, end: 20100501
  3. METHOTREXATE [Concomitant]
     Indication: PSORIATIC ARTHROPATHY
     Dates: start: 20080101
  4. IXPRIN [Concomitant]
     Indication: PRODUCT USED FOR UNKNOWN INDICATION
     Dosage: 1-2 TABLETS, 1 IN 8 HOURS
     Route: 048
  5. CRESTON [Concomitant]
     Indication: PRODUCT USED FOR UNKNOWN INDICATION
     Dosage: ON MONDAYS
     Route: 048
  6. HUMIRA [Suspect]
     Dates: end: 20100801

REACTIONS (8)
  - PSORIATIC ARTHROPATHY [None]
  - FINGER DEFORMITY [None]
  - RHEUMATOID ARTHRITIS [None]
  - BLADDER NEOPLASM [None]
  - HAEMATURIA [None]
  - PROSTATE CANCER [None]
  - ARTHRALGIA [None]
  - URINARY BLADDER HAEMORRHAGE [None]
